FAERS Safety Report 20901519 (Version 1)
Quarter: 2022Q2

REPORT INFORMATION
  Report Type: Other
  Country: CH (occurrence: CH)
  Receive Date: 20220601
  Receipt Date: 20220601
  Transmission Date: 20220721
  Serious: Yes (Life-Threatening)
  Sender: FDA-Public Use
  Company Number: None

PATIENT

DRUGS (7)
  1. RUXOLITINIB [Suspect]
     Active Substance: RUXOLITINIB
     Indication: Myelofibrosis
     Dosage: 15 MG
     Route: 048
     Dates: start: 20151231
  2. THALIDOMIDE [Concomitant]
     Active Substance: THALIDOMIDE
     Indication: Myelofibrosis
     Dosage: 50 MG
     Route: 048
     Dates: start: 20210727
  3. PREDNISONE [Concomitant]
     Active Substance: PREDNISONE
     Indication: Myelofibrosis
     Dosage: 50 MG 1X/J INITIALLY =} NOW 8 MG 1X/J
     Route: 048
     Dates: start: 20210727
  4. VALTREX [Concomitant]
     Active Substance: VALACYCLOVIR HYDROCHLORIDE
     Indication: Herpes simplex reactivation
     Dosage: 500 MG
     Route: 048
     Dates: start: 20200820
  5. CANDESARTAN [Concomitant]
     Active Substance: CANDESARTAN
     Indication: Hypertension
     Dosage: 16 MG
     Route: 048
  6. REMERON [Concomitant]
     Active Substance: MIRTAZAPINE
     Indication: Depression
     Dosage: 15 MG
     Route: 048
     Dates: start: 20201006
  7. ALLOPURINOL [Concomitant]
     Active Substance: ALLOPURINOL
     Indication: Gout
     Dosage: 100 MG
     Route: 048

REACTIONS (2)
  - Skin cancer [Recovered/Resolved]
  - Lung carcinoma cell type unspecified stage IV [Unknown]

NARRATIVE: CASE EVENT DATE: 20190701
